FAERS Safety Report 4930662-1 (Version None)
Quarter: 2006Q1

REPORT INFORMATION
  Report Type: 
  Country: None (occurrence: None)
  Receive Date: 20060227
  Receipt Date: 20060213
  Transmission Date: 20060701
  Serious: Yes (Other)
  Sender: FDA-Public Use
  Company Number: TRP_0690_2006

PATIENT
  Age: 37 Year
  Sex: Female

DRUGS (2)
  1. RIBASPHERE [Suspect]
     Indication: HEPATITIS C
     Dosage: DF PO
     Route: 048
     Dates: start: 20051018
  2. PEGASYS [Suspect]
     Indication: HEPATITIS C
     Dosage: DF SC
     Route: 058

REACTIONS (11)
  - ABDOMINAL PAIN [None]
  - ANOREXIA [None]
  - DIARRHOEA HAEMORRHAGIC [None]
  - DYSPEPSIA [None]
  - FATIGUE [None]
  - HAEMOGLOBIN DECREASED [None]
  - INFLUENZA LIKE ILLNESS [None]
  - NAUSEA [None]
  - PLATELET COUNT DECREASED [None]
  - WEIGHT DECREASED [None]
  - WHITE BLOOD CELL COUNT DECREASED [None]
